FAERS Safety Report 6543234-2 (Version None)
Quarter: 2010Q1

REPORT INFORMATION
  Report Type: 
  Country: None (occurrence: None)
  Receive Date: 20100120
  Receipt Date: 20100108
  Transmission Date: 20100710
  Serious: Yes (Hospitalization)
  Sender: FDA-Public Use
  Company Number: TR-PFIZER INC-2010004214

PATIENT
  Age: 62 Year
  Sex: Male
  Weight: 59 kg

DRUGS (4)
  1. SUTENT [Suspect]
     Indication: RENAL CELL CARCINOMA
     Dosage: UNK
     Route: 048
     Dates: start: 20080121
  2. METPAMID [Concomitant]
  3. PAROL [Concomitant]
  4. DELIX [Concomitant]
     Indication: HYPERTENSION
     Dosage: 5 MG, UNK

REACTIONS (1)
  - MYOCARDIAL INFARCTION [None]
